FAERS Safety Report 26049196 (Version 1)
Quarter: 2025Q4

REPORT INFORMATION
  Report Type: Spontaneous
  Country: EU (occurrence: EU)
  Receive Date: 20251115
  Receipt Date: 20251115
  Transmission Date: 20260118
  Serious: Yes (Other)
  Sender: AMGEN
  Company Number: EU-AMGEN-ESPSP2025225238

PATIENT

DRUGS (1)
  1. ROMOSOZUMAB [Suspect]
     Active Substance: ROMOSOZUMAB
     Indication: Osteoporosis
     Dosage: UNK
     Route: 058

REACTIONS (3)
  - Spinal fracture [Unknown]
  - Fracture [Unknown]
  - Adverse event [Unknown]
